FAERS Safety Report 18454780 (Version 1)
Quarter: 2020Q4

REPORT INFORMATION
  Report Type: Spontaneous
  Country: CN (occurrence: CN)
  Receive Date: 20201102
  Receipt Date: 20201102
  Transmission Date: 20210114
  Serious: Yes (Hospitalization)
  Sender: FDA-Public Use
  Company Number: CN-AMNEAL PHARMACEUTICALS-2020-AMRX-03440

PATIENT
  Age: 58 Year
  Sex: Female

DRUGS (5)
  1. POTASSIUM SODIUM HYDROGEN CITRATE [Concomitant]
     Active Substance: POTASSIUM SODIUM HYDROGEN CITRATE
     Indication: HYPOKALAEMIA
     Dosage: UNK
     Route: 048
  2. POTASSIUM [Concomitant]
     Active Substance: POTASSIUM
     Indication: HYPOKALAEMIA
     Dosage: UNK
     Route: 065
  3. MIDODRINE HYDROCHLORIDE. [Suspect]
     Active Substance: MIDODRINE HYDROCHLORIDE
     Indication: HYPOTENSION
     Dosage: 2.5 MILLIGRAM, 3 /DAY
     Route: 048
  4. MAGNESIUM ASPARTATE [Concomitant]
     Active Substance: MAGNESIUM ASPARTATE
     Indication: HYPOMAGNESAEMIA
     Dosage: UNK
     Route: 065
  5. CALCIUM GLUCONATE. [Concomitant]
     Active Substance: CALCIUM GLUCONATE
     Indication: HYPOCALCAEMIA
     Dosage: UNK
     Route: 042

REACTIONS (3)
  - Myoclonus [Recovered/Resolved]
  - Paraesthesia [Recovered/Resolved]
  - Myoclonic epilepsy [Recovered/Resolved]
